FAERS Safety Report 7578548-0 (Version None)
Quarter: 2011Q2

REPORT INFORMATION
  Report Type: 
  Country: None (occurrence: None)
  Receive Date: 20110628
  Receipt Date: 20110624
  Transmission Date: 20111010
  Serious: Yes (Death)
  Sender: FDA-Public Use
  Company Number: US-PFIZER INC-2011105490

PATIENT
  Age: 28 Year
  Sex: Male
  Weight: 104 kg

DRUGS (5)
  1. ALPRAZOLAM [Suspect]
     Dosage: UNK
  2. METHADONE HCL [Suspect]
     Dosage: UNK
  3. FENTANYL [Suspect]
     Dosage: UNK
  4. HEROIN [Suspect]
     Dosage: UNK
  5. DEXTROMETHORPHAN HYDROBROMIDE [Suspect]
     Dosage: UNK

REACTIONS (3)
  - ACCIDENTAL OVERDOSE [None]
  - PULMONARY OEDEMA [None]
  - TOXICITY TO VARIOUS AGENTS [None]
